FAERS Safety Report 13445144 (Version 1)
Quarter: 2017Q2

REPORT INFORMATION
  Report Type: Spontaneous
  Country: CH (occurrence: CH)
  Receive Date: 20170414
  Receipt Date: 20170414
  Transmission Date: 20170830
  Serious: Yes (Hospitalization, Other)
  Sender: FDA-Public Use
  Company Number: CH-009507513-1704CHE004650

PATIENT
  Age: 0 Year
  Sex: Male
  Weight: 2.16 kg

DRUGS (12)
  1. CYANOCOBALAMIN. [Concomitant]
     Active Substance: CYANOCOBALAMIN
     Indication: ANAEMIA PROPHYLAXIS
     Route: 064
     Dates: start: 201609, end: 201611
  2. NEUPOGEN [Suspect]
     Active Substance: FILGRASTIM
     Indication: AGRANULOCYTOSIS
     Dosage: 30 MILLION IU, UNK
     Route: 064
     Dates: start: 201608, end: 201608
  3. SOLU-MEDROL [Suspect]
     Active Substance: METHYLPREDNISOLONE SODIUM SUCCINATE
     Indication: PROPHYLAXIS OF NAUSEA AND VOMITING
     Dosage: 125 MG, UNK
     Route: 064
     Dates: start: 20160729, end: 20170106
  4. DOXORUBICIN [Suspect]
     Active Substance: DOXORUBICIN
     Indication: HODGKIN^S DISEASE NODULAR SCLEROSIS
     Dosage: 25 MG/M2, UNK
     Route: 064
     Dates: start: 20160729, end: 20170106
  5. BLEOMYCIN SULFATE [Suspect]
     Active Substance: BLEOMYCIN SULFATE
     Indication: HODGKIN^S DISEASE NODULAR SCLEROSIS
     Dosage: 10000 IU, UNK
     Route: 064
     Dates: start: 20160729, end: 20170106
  6. ZOFRAN [Suspect]
     Active Substance: ONDANSETRON HYDROCHLORIDE
     Indication: PROPHYLAXIS OF NAUSEA AND VOMITING
     Dosage: 8 MG, UNK
     Route: 064
     Dates: start: 20160729, end: 20170106
  7. FOLIC ACID. [Concomitant]
     Active Substance: FOLIC ACID
     Indication: ANAEMIA PROPHYLAXIS
     Route: 064
     Dates: start: 201609, end: 201611
  8. DACARBAZINE. [Suspect]
     Active Substance: DACARBAZINE
     Indication: HODGKIN^S DISEASE NODULAR SCLEROSIS
     Dosage: 375 MG/M2, UNK
     Route: 064
     Dates: start: 20160729, end: 20170106
  9. ASCORBIC ACID (+) BIOTIN (+) COPPER (+) CYSTEINE (+) FOLIC ACID (+) IO [Concomitant]
     Indication: NUTRITIONAL SUPPLEMENTATION
     Route: 064
     Dates: start: 2016, end: 2016
  10. EMEND [Suspect]
     Active Substance: APREPITANT
     Indication: PROPHYLAXIS OF NAUSEA AND VOMITING
     Dosage: 125 MG, UNK
     Route: 064
     Dates: start: 20160729, end: 20160730
  11. VINBLASTINE SULFATE. [Suspect]
     Active Substance: VINBLASTINE SULFATE
     Indication: HODGKIN^S DISEASE NODULAR SCLEROSIS
     Dosage: 6 MG/M2, UNK
     Route: 064
     Dates: start: 20160729, end: 20170106
  12. EUTHYROX [Concomitant]
     Active Substance: LEVOTHYROXINE SODIUM
     Indication: HYPOTHYROIDISM
     Dosage: 25 MICROGRAM, QD
     Route: 064
     Dates: start: 20160624

REACTIONS (4)
  - Neonatal respiratory distress syndrome [Recovered/Resolved]
  - Small for dates baby [Recovering/Resolving]
  - Hyperbilirubinaemia neonatal [Recovered/Resolved]
  - Exposure during pregnancy [Recovered/Resolved]

NARRATIVE: CASE EVENT DATE: 20160729
